FAERS Safety Report 7981139-0 (Version None)
Quarter: 2011Q4

REPORT INFORMATION
  Report Type: 
  Country: None (occurrence: None)
  Receive Date: 20111215
  Receipt Date: 20111202
  Transmission Date: 20120403
  Serious: Yes (Other)
  Sender: FDA-Public Use
  Company Number: GB-RANBAXY-2011R1-50931

PATIENT
  Age: 52 Year
  Sex: Male
  Weight: 76.3 kg

DRUGS (1)
  1. AMOXICILLIN [Suspect]
     Indication: EAR INFECTION
     Dosage: 500 MG, TID
     Route: 048
     Dates: start: 20111122, end: 20111122

REACTIONS (4)
  - VOMITING [None]
  - DIARRHOEA [None]
  - URTICARIA [None]
  - SWELLING [None]
